FAERS Safety Report 8121180-0 (Version None)
Quarter: 2012Q1

REPORT INFORMATION
  Report Type: 
  Country: None (occurrence: None)
  Receive Date: 20120208
  Receipt Date: 20120206
  Transmission Date: 20120608
  Serious: Yes (Hospitalization)
  Sender: FDA-Public Use
  Company Number: CH-BAYER-2012-011360

PATIENT
  Age: 85 Year
  Sex: Female

DRUGS (6)
  1. ZYVOX [Interacting]
     Indication: LIVER ABSCESS
     Dosage: 600 MG, BID
     Route: 048
     Dates: start: 20111222, end: 20120112
  2. AMLODIPINE [Concomitant]
     Dosage: 10 MG, QD
     Route: 048
  3. METOPROLOL TARTRATE AND HYDROCHLOROTHIAZIDE [Concomitant]
     Dosage: 25 MG, QD
     Route: 048
  4. TORSEMIDE [Concomitant]
     Dosage: 10 MG, QD
     Route: 048
     Dates: end: 20120101
  5. CIPROFLOXACIN HYDROCHLORIDE [Suspect]
     Indication: LIVER ABSCESS
     Dosage: 500 MG, BID
     Route: 048
     Dates: start: 20111222, end: 20120112
  6. ASPIRIN [Interacting]
     Indication: ISCHAEMIC CARDIOMYOPATHY
     Dosage: 100 MG, QD
     Route: 048
     Dates: end: 20120113

REACTIONS (4)
  - ANAEMIA [None]
  - THROMBOCYTOPENIA [None]
  - MELAENA [None]
  - LEUKOPENIA [None]
